FAERS Safety Report 15438987 (Version 1)
Quarter: 2018Q3

REPORT INFORMATION
  Report Type: Spontaneous
  Country: US (occurrence: US)
  Receive Date: 20180924
  Receipt Date: 20180924
  Transmission Date: 20181010
  Serious: Yes (Life-Threatening, Hospitalization, Disabling)
  Sender: FDA-Public Use
  Company Number: None

PATIENT
  Age: 62 Year
  Sex: Female
  Weight: 64.41 kg

DRUGS (20)
  1. IMODIUM [Concomitant]
     Active Substance: LOPERAMIDE HYDROCHLORIDE
  2. FORTEO [Suspect]
     Active Substance: TERIPARATIDE
  3. MULTIVITAMIN [Concomitant]
     Active Substance: VITAMINS
  4. MEGARED FISH OIL [Concomitant]
  5. VALIUM [Concomitant]
     Active Substance: DIAZEPAM
  6. LEXAPRO [Concomitant]
     Active Substance: ESCITALOPRAM OXALATE
  7. CYTOMEL [Concomitant]
     Active Substance: LIOTHYRONINE SODIUM
  8. VIVELLE [Concomitant]
     Active Substance: ESTRADIOL
  9. VITAMIN D3 [Concomitant]
     Active Substance: CHOLECALCIFEROL
  10. PRILOSEC [Concomitant]
     Active Substance: OMEPRAZOLE MAGNESIUM
  11. IRON [Concomitant]
     Active Substance: IRON
  12. VITAFUSION [Concomitant]
  13. PERCOCET [Concomitant]
     Active Substance: ACETAMINOPHEN\OXYCODONE HYDROCHLORIDE
  14. SYNTHROID [Concomitant]
     Active Substance: LEVOTHYROXINE SODIUM
  15. ADDERALL [Concomitant]
     Active Substance: AMPHETAMINE ASPARTATE\AMPHETAMINE SULFATE\DEXTROAMPHETAMINE SACCHARATE\DEXTROAMPHETAMINE SULFATE
  16. CALCIUM [Concomitant]
     Active Substance: CALCIUM
  17. TRAZODONE [Concomitant]
     Active Substance: TRAZODONE HYDROCHLORIDE
  18. FLEXORALL [Concomitant]
  19. ZYRTEC [Concomitant]
     Active Substance: CETIRIZINE HYDROCHLORIDE
  20. DULCOLAX NOS [Concomitant]
     Active Substance: BISACODYL OR DOCUSATE SODIUM

REACTIONS (17)
  - Arthralgia [None]
  - Headache [None]
  - Cough [None]
  - Overdose [None]
  - Renal failure [None]
  - Injury [None]
  - Influenza [None]
  - Sepsis [None]
  - Stress [None]
  - Malaise [None]
  - Disturbance in attention [None]
  - Device malfunction [None]
  - Anal incontinence [None]
  - Influenza like illness [None]
  - Abdominal discomfort [None]
  - Coma [None]
  - Small intestinal obstruction [None]
